FAERS Safety Report 6288143-1 (Version None)
Quarter: 2009Q3

REPORT INFORMATION
  Report Type: 
  Country: None (occurrence: None)
  Receive Date: 20090729
  Receipt Date: 20090518
  Transmission Date: 20100115
  Serious: No
  Sender: FDA-Public Use
  Company Number: A0784866A

PATIENT
  Age: 50 Year
  Sex: Female

DRUGS (2)
  1. ZANTAC [Suspect]
     Dosage: 2TSP PER DAY
     Route: 048
     Dates: end: 20090513
  2. LEVOTHYROXINE SODIUM [Suspect]
     Indication: THYROID DISORDER
     Dosage: 25MCG PER DAY
     Route: 065
     Dates: start: 20090423, end: 20090505

REACTIONS (8)
  - ABDOMINAL PAIN UPPER [None]
  - ASTHENIA [None]
  - CHEST PAIN [None]
  - DYSPEPSIA [None]
  - DYSPNOEA [None]
  - GLOSSODYNIA [None]
  - ORAL DISCOMFORT [None]
  - PARAESTHESIA ORAL [None]
